FAERS Safety Report 4403625-2 (Version None)
Quarter: 2004Q3

REPORT INFORMATION
  Report Type: 
  Country: None (occurrence: None)
  Receive Date: 20040719
  Receipt Date: 20040706
  Transmission Date: 20050211
  Serious: Yes (Hospitalization)
  Sender: FDA-Public Use
  Company Number: 2004045500

PATIENT
  Age: 56 Year
  Sex: Female
  Weight: 71.2147 kg

DRUGS (9)
  1. LIPITOR [Suspect]
     Indication: ILL-DEFINED DISORDER
     Dosage: 10 MG (1 IN 1 D); ORAL (SEE IMAGE)
     Route: 048
     Dates: start: 20040410, end: 20040428
  2. BIVALIRUDIN (BIVALIRUDIN) [Suspect]
     Indication: ACUTE CORONARY SYNDROME
     Dosage: UNKNOWN, INTRAVENOUS (SEE IMAGE)
     Route: 042
     Dates: start: 20040408, end: 20040409
  3. EPTIFIBATIDE (EPTIFIBATIDE) [Suspect]
     Indication: ILL-DEFINED DISORDER
     Dosage: UNKNOWN; INTRAVENOUS (SEE IMAGE)
     Route: 042
     Dates: start: 20040409
  4. RAMIPRIL [Concomitant]
  5. ASPIRIN [Concomitant]
  6. ISOSORBIDE MONONITRATE [Concomitant]
  7. NICOTINIC ACID [Concomitant]
  8. CLOPIDOGREL BISULFATE [Concomitant]
  9. METOPROLOL [Concomitant]

REACTIONS (11)
  - ANGINA UNSTABLE [None]
  - ASTHENIA [None]
  - CHEST PAIN [None]
  - CORONARY ARTERY DISEASE [None]
  - EJECTION FRACTION DECREASED [None]
  - ELECTROCARDIOGRAM T WAVE INVERSION [None]
  - HYPOAESTHESIA [None]
  - MUSCULAR WEAKNESS [None]
  - RED BLOOD CELL SEDIMENTATION RATE INCREASED [None]
  - TROPONIN INCREASED [None]
  - VENTRICULAR HYPOKINESIA [None]
